FAERS Safety Report 6593815-5 (Version None)
Quarter: 2010Q1

REPORT INFORMATION
  Report Type: 
  Country: None (occurrence: None)
  Receive Date: 20100222
  Receipt Date: 20100208
  Transmission Date: 20100710
  Serious: Yes (Death)
  Sender: FDA-Public Use
  Company Number: DE-GENENTECH-298240

PATIENT

DRUGS (4)
  1. XOLAIR [Suspect]
     Indication: ASTHMA
     Dosage: 300 MG, UNK
     Route: 064
     Dates: end: 20090826
  2. FOSTER [Concomitant]
     Indication: DRUG USE FOR UNKNOWN INDICATION
     Route: 064
  3. FORADIL [Concomitant]
     Indication: DRUG USE FOR UNKNOWN INDICATION
     Dosage: UNK
     Route: 064
     Dates: start: 20091111
  4. BERODUAL [Concomitant]
     Indication: DRUG USE FOR UNKNOWN INDICATION
     Dosage: UNK
     Route: 064
     Dates: start: 20091006

REACTIONS (2)
  - ABORTION INDUCED [None]
  - DEATH [None]
